FAERS Safety Report 10411927 (Version 1)
Quarter: 2014Q2

REPORT INFORMATION
  Report Type: Spontaneous
  Country: US (occurrence: None)
  Receive Date: 20140604
  Receipt Date: 20140604
  Transmission Date: 20141212
  Serious: Yes (Other)
  Sender: FDA-Public Use
  Company Number: 163-POMAL-14045432

PATIENT
  Age: 65 Year
  Sex: Male

DRUGS (10)
  1. POMALYST [Suspect]
     Indication: PLASMA CELL MYELOMA
     Route: 048
     Dates: start: 20130509
  2. PROTONIX [Concomitant]
  3. FLAGYL (METRONIDAZOLE) [Concomitant]
  4. SENOKOT (SENNA FRUIT) [Concomitant]
  5. DEXAMETHASONE (DEXAMETHASONE) [Concomitant]
  6. PREDNISONE (PREDNISONE) [Concomitant]
  7. FENTANYL (FENTANYL) [Concomitant]
  8. VALTREX (VALACICLOVIR HYDROCHLORIDE) [Concomitant]
  9. TOPROL XL (METOPROLOL SUCCINATE [Concomitant]
  10. DILTIAZEM 24HR CD (DILTIAZEM) [Concomitant]

REACTIONS (1)
  - Pulmonary embolism [None]
